FAERS Safety Report 7275771-X (Version None)
Quarter: 2011Q1

REPORT INFORMATION
  Report Type: 
  Country: None (occurrence: None)
  Receive Date: 20110204
  Receipt Date: 20110124
  Transmission Date: 20110831
  Serious: Yes (Life-Threatening, Other)
  Sender: FDA-Public Use
  Company Number: JP-MERCK-1012USA02809

PATIENT
  Age: 42 Year
  Sex: Female

DRUGS (5)
  1. COSOPT [Suspect]
     Indication: GLAUCOMA
     Dosage: ONE DROP TO EACH EYE PER DOSE
     Route: 047
     Dates: start: 20100709, end: 20100716
  2. LIVOSTIN [Concomitant]
     Indication: CONJUNCTIVITIS ALLERGIC
     Dosage: ONE DROP TO EACH EYE PER DOSE
     Route: 047
     Dates: start: 20090903
  3. HYALEIN [Concomitant]
     Indication: KERATOCONJUNCTIVITIS SICCA
     Dosage: ONE DROP TO EACH EYE PER DOSE
     Route: 047
     Dates: start: 20090903
  4. TAPROS (TAFLUPROST) [Concomitant]
     Indication: GLAUCOMA
     Dosage: ONE DROP TO EACH EYE PER DOSE
     Route: 047
     Dates: start: 20091105, end: 20101116
  5. SANCOBA [Concomitant]
     Indication: ASTHENOPIA
     Dosage: ONE DROP TO EACH EYE PER DOSE
     Route: 047
     Dates: start: 20090509

REACTIONS (2)
  - PALPITATIONS [None]
  - OROPHARYNGEAL DISCOMFORT [None]
